FAERS Safety Report 14253269 (Version 1)
Quarter: 2017Q4

REPORT INFORMATION
  Report Type: Report from Study
  Country: US (occurrence: US)
  Receive Date: 20171205
  Receipt Date: 20171205
  Transmission Date: 20180321
  Serious: Yes (Hospitalization, Other)
  Sender: FDA-Public Use
  Company Number: US-BAYER-2017-179696

PATIENT
  Age: 47 Year
  Sex: Female
  Weight: 53.97 kg

DRUGS (6)
  1. TYVASO [Suspect]
     Active Substance: TREPROSTINIL
     Indication: PULMONARY HYPERTENSION
     Dosage: 72 ?G, QID
     Route: 055
  2. ADEMPAS [Suspect]
     Active Substance: RIOCIGUAT
     Indication: PULMONARY HYPERTENSION
     Dosage: 1 MG, TID
     Route: 048
     Dates: start: 2017, end: 2017
  3. ADEMPAS [Suspect]
     Active Substance: RIOCIGUAT
     Indication: PULMONARY HYPERTENSION
     Dosage: 1.5 MG, TID
     Route: 048
  4. ADEMPAS [Suspect]
     Active Substance: RIOCIGUAT
     Indication: PULMONARY HYPERTENSION
     Dosage: 0.5 MG, TID
     Route: 048
     Dates: start: 20170831
  5. TYVASO [Suspect]
     Active Substance: TREPROSTINIL
     Indication: PULMONARY HYPERTENSION
     Dosage: 18-72 MCG, QID
     Route: 055
     Dates: start: 20170105
  6. LETAIRIS [Concomitant]
     Active Substance: AMBRISENTAN
     Dosage: UNK

REACTIONS (15)
  - Blood pressure decreased [Recovering/Resolving]
  - Contrast media allergy [Unknown]
  - Rash [Not Recovered/Not Resolved]
  - Dyspnoea [Unknown]
  - Vomiting [None]
  - Pyrexia [None]
  - Blister [Not Recovered/Not Resolved]
  - Nausea [None]
  - Spinal operation [Unknown]
  - Headache [None]
  - Pain in jaw [Unknown]
  - Staphylococcal skin infection [Unknown]
  - Pancreatitis [None]
  - Hypotension [Unknown]
  - Drug hypersensitivity [None]

NARRATIVE: CASE EVENT DATE: 2017
